FAERS Safety Report 5134763-7 (Version None)
Quarter: 2006Q4

REPORT INFORMATION
  Report Type: 
  Country: None (occurrence: None)
  Receive Date: 20061025
  Receipt Date: 20060911
  Transmission Date: 20070319
  Serious: Yes (Hospitalization)
  Sender: FDA-Public Use
  Company Number: US-ROCHE-462921

PATIENT
  Age: 53 Year
  Sex: Female

DRUGS (9)
  1. PEGASYS [Suspect]
     Indication: HEPATITIS C
     Dosage: STRENGTH REPORTED AS 180 MCG/0.5CC.
     Route: 058
     Dates: start: 20060210
  2. PEGASYS [Suspect]
     Dosage: STRENGTH: 180 MCG/0.5ML.
     Route: 058
  3. RIBAPAK [Suspect]
     Indication: HEPATITIS C
     Route: 048
     Dates: start: 20060210
  4. RIBAPAK [Suspect]
     Route: 048
     Dates: start: 20061004
  5. PROZAC [Concomitant]
     Indication: DEPRESSION
     Route: 048
  6. KLONOPIN [Concomitant]
     Indication: DEPRESSION
     Route: 048
  7. SEROQUEL [Concomitant]
     Indication: SOMNOLENCE
     Dosage: DRUG REPORTED AS SERAQUEL.
     Route: 048
  8. ADDERALL 10 [Concomitant]
     Dosage: DOSAGE REGIMEN REPORTED AS NEEDED AS ^PICK UP^.
     Route: 048
  9. NEXIUM [Concomitant]
     Dosage: DOSAGE REGIMEN REPORTED AS ONE DAILY.
     Route: 048

REACTIONS (5)
  - ANAEMIA [None]
  - FALL [None]
  - GOUT [None]
  - RENAL FAILURE ACUTE [None]
  - URINARY TRACT INFECTION [None]
